FAERS Safety Report 10462992 (Version 3)
Quarter: 2014Q3

REPORT INFORMATION
  Report Type: Spontaneous
  Country: CA (occurrence: CA)
  Receive Date: 20140919
  Receipt Date: 20140924
  Transmission Date: 20150326
  Serious: Yes (Death)
  Sender: FDA-Public Use
  Company Number: CA-ROCHE-1462858

PATIENT
  Sex: Female

DRUGS (7)
  1. ATENOLOL. [Concomitant]
     Active Substance: ATENOLOL
  2. AMLODIPINE [Concomitant]
     Active Substance: AMLODIPINE BESYLATE
  3. COTAZYM [Concomitant]
     Active Substance: PANCRELIPASE
  4. INSULIN [Concomitant]
     Active Substance: INSULIN NOS
  5. IMMUNOGLOBULIN IV [Suspect]
     Active Substance: HUMAN IMMUNOGLOBULIN G
     Indication: PRODUCT USED FOR UNKNOWN INDICATION
     Route: 042
  6. IRBESARTAN. [Concomitant]
     Active Substance: IRBESARTAN
  7. ELTROXIN [Concomitant]
     Active Substance: LEVOTHYROXINE

REACTIONS (2)
  - Disease progression [Fatal]
  - Drug ineffective [Unknown]
